FAERS Safety Report 8499972-8 (Version None)
Quarter: 2012Q3

REPORT INFORMATION
  Report Type: 
  Country: None (occurrence: None)
  Receive Date: 20120710
  Receipt Date: 20120627
  Transmission Date: 20120928
  Serious: Yes (Life-Threatening, Other)
  Sender: FDA-Public Use
  Company Number: JP-ELI_LILLY_AND_COMPANY-JP201206004898

PATIENT
  Age: 34 Year
  Sex: Male

DRUGS (6)
  1. LITHIUM CARBONATE [Concomitant]
     Indication: BIPOLAR DISORDER
     Dosage: UNK
     Route: 048
  2. VALPROATE SODIUM [Concomitant]
     Indication: BIPOLAR DISORDER
     Dosage: UNK
     Route: 048
  3. BROTIZOLAM [Concomitant]
     Dosage: UNK
     Route: 048
  4. ZYPREXA [Suspect]
     Indication: BIPOLAR DISORDER
     Dosage: 10 MG, QD
     Route: 048
  5. QUETIAPINE [Concomitant]
     Indication: BIPOLAR DISORDER
     Dosage: UNK
     Route: 048
  6. FLUNITRAZEPAM [Concomitant]
     Dosage: UNK
     Route: 048

REACTIONS (15)
  - BLOOD PRESSURE DECREASED [None]
  - BLOOD CREATININE INCREASED [None]
  - PROCALCITONIN INCREASED [None]
  - BODY TEMPERATURE INCREASED [None]
  - BLOOD CREATINE PHOSPHOKINASE INCREASED [None]
  - OLIGURIA [None]
  - DELIRIUM [None]
  - WHITE BLOOD CELL COUNT INCREASED [None]
  - CRITICAL ILLNESS POLYNEUROPATHY [None]
  - ENTEROCOLITIS [None]
  - CONVULSION [None]
  - BLOOD UREA INCREASED [None]
  - C-REACTIVE PROTEIN INCREASED [None]
  - HEART RATE INCREASED [None]
  - AGITATION [None]
